FAERS Safety Report 15270246 (Version 7)
Quarter: 2021Q4

REPORT INFORMATION
  Report Type: Spontaneous
  Country: US (occurrence: US)
  Receive Date: 20180813
  Receipt Date: 20211126
  Transmission Date: 20220303
  Serious: No
  Sender: FDA-Public Use
  Company Number: US-PFIZER INC-2017277816

PATIENT
  Age: 13 Year
  Sex: Female

DRUGS (3)
  1. GENOTROPIN [Suspect]
     Active Substance: SOMATROPIN
     Indication: Craniopharyngioma
     Dosage: 1.4 MG, DAILY
     Dates: start: 201705
  2. GENOTROPIN [Suspect]
     Active Substance: SOMATROPIN
     Dosage: 1.6 MG, DAILY
     Dates: start: 20170520
  3. GENOTROPIN [Suspect]
     Active Substance: SOMATROPIN
     Dosage: 0.6 MG, DAILY (0.6 MG PER DAY)
     Dates: start: 20170520

REACTIONS (11)
  - Alanine aminotransferase increased [Unknown]
  - Bone density decreased [Unknown]
  - Blood cholesterol increased [Unknown]
  - High density lipoprotein decreased [Unknown]
  - Blood triglycerides increased [Unknown]
  - Low density lipoprotein increased [Unknown]
  - Total cholesterol/HDL ratio decreased [Unknown]
  - Non-high-density lipoprotein cholesterol increased [Unknown]
  - Neutrophil count decreased [Unknown]
  - Insulin-like growth factor decreased [Unknown]
  - Off label use [Unknown]

NARRATIVE: CASE EVENT DATE: 20170520
